FAERS Safety Report 9252770 (Version 1)
Quarter: 2013Q2

REPORT INFORMATION
  Report Type: Spontaneous
  Country: FR (occurrence: FR)
  Receive Date: 20130424
  Receipt Date: 20130424
  Transmission Date: 20140414
  Serious: Yes (Other)
  Sender: FDA-Public Use
  Company Number: FR-TEVA-399539ISR

PATIENT
  Sex: Female

DRUGS (1)
  1. COPAXONE [Suspect]
     Indication: MULTIPLE SCLEROSIS
     Dates: start: 2006

REACTIONS (7)
  - Multiple sclerosis relapse [Recovered/Resolved]
  - Eye movement disorder [Recovered/Resolved with Sequelae]
  - Monoplegia [Recovered/Resolved]
  - Injection site pain [Unknown]
  - Injection site induration [Unknown]
  - Stress [Unknown]
  - Fatigue [Unknown]
